FAERS Safety Report 7375198-6 (Version None)
Quarter: 2011Q1

REPORT INFORMATION
  Report Type: 
  Country: None (occurrence: None)
  Receive Date: 20110325
  Receipt Date: 20110314
  Transmission Date: 20110831
  Serious: Yes (Hospitalization)
  Sender: FDA-Public Use
  Company Number: ES-SANOFI-AVENTIS-2011SA015318

PATIENT
  Age: 80 Year
  Sex: Female

DRUGS (12)
  1. OXALIPLATIN [Suspect]
     Indication: DIFFUSE LARGE B-CELL LYMPHOMA
     Route: 042
  2. OXALIPLATIN [Suspect]
     Route: 042
     Dates: start: 20101005, end: 20101005
  3. GEMCITABINE [Suspect]
     Indication: DIFFUSE LARGE B-CELL LYMPHOMA
     Route: 042
  4. FLUCONAZOLE [Concomitant]
     Dates: start: 20101004
  5. MABTHERA [Suspect]
     Route: 042
     Dates: start: 20101105, end: 20101105
  6. MABTHERA [Suspect]
     Indication: DIFFUSE LARGE B-CELL LYMPHOMA
     Route: 042
  7. MABTHERA [Suspect]
     Route: 042
     Dates: start: 20101004, end: 20101004
  8. OXALIPLATIN [Suspect]
     Route: 042
     Dates: start: 20101106, end: 20101106
  9. GEMCITABINE [Suspect]
     Route: 042
     Dates: start: 20101106, end: 20101106
  10. ACYCLOVIR [Concomitant]
     Dates: start: 20101004
  11. SEPTRIN [Concomitant]
     Dates: start: 20101004
  12. GEMCITABINE [Suspect]
     Route: 042
     Dates: start: 20101005, end: 20101005

REACTIONS (3)
  - CARDIAC FAILURE ACUTE [None]
  - HYPOCALCAEMIA [None]
  - ATRIAL FIBRILLATION [None]
